FAERS Safety Report 14571652 (Version 4)
Quarter: 2018Q2

REPORT INFORMATION
  Report Type: Spontaneous
  Country: US (occurrence: US)
  Receive Date: 20180226
  Receipt Date: 20180615
  Transmission Date: 20180711
  Serious: No
  Sender: FDA-Public Use
  Company Number: US-PFIZER INC-2018078851

PATIENT
  Age: 66 Year
  Sex: Female
  Weight: 75.28 kg

DRUGS (14)
  1. LYRICA [Suspect]
     Active Substance: PREGABALIN
     Dosage: UNK
  2. SYNTHROID [Concomitant]
     Active Substance: LEVOTHYROXINE SODIUM
     Dosage: 125 UG, 1X/DAY
     Route: 048
     Dates: start: 20180201, end: 20180302
  3. VOLTAREN [Concomitant]
     Active Substance: DICLOFENAC SODIUM
     Dosage: UNK, 4X/DAY [APPLY 2-4 GRAMS TO THE AFFECTED AREA]
     Route: 061
  4. LYRICA [Suspect]
     Active Substance: PREGABALIN
     Dosage: 50 MG, UNK
     Route: 048
     Dates: end: 20180111
  5. LYRICA [Suspect]
     Active Substance: PREGABALIN
     Dosage: 150 MG, DAILY (2 CAPSULES Q AM, THEN 1 CAPSULE AT NIGHT)
     Dates: start: 20180130
  6. DOXYCYCLINE HYCLATE. [Concomitant]
     Active Substance: DOXYCYCLINE HYCLATE
     Dosage: 100 MG, 2X/DAY (10 DAYS, FOR A TOTAL OF 20)
     Dates: start: 20171116, end: 20171125
  7. HYDROCODONE/ACETAMINOPHEN [Concomitant]
     Active Substance: ACETAMINOPHEN\HYDROCODONE
     Dosage: UNK, AS NEEDED [HYDROCODONE: 7.5 MG;A  ACETAMINOPHEN: 325 MG, 1 TABLET 3 TIMES A DAY]
     Route: 048
  8. LEVOTHYROXINE SODIUM. [Concomitant]
     Active Substance: LEVOTHYROXINE SODIUM
     Dosage: 125 UG, UNK
  9. LYRICA [Suspect]
     Active Substance: PREGABALIN
     Dosage: UNK
     Dates: start: 20170919
  10. MS CONTIN [Concomitant]
     Active Substance: MORPHINE SULFATE
     Dosage: 30 MG, 2X/DAY [FOR 30 DAYS]
     Route: 048
  11. NORCO [Concomitant]
     Active Substance: ACETAMINOPHEN\HYDROCODONE BITARTRATE
     Dosage: 1 DF, 3X/DAY (HYDROCODONE BITARTRATE-7.5 MG, PARACETAMOL-325 MG)
     Route: 048
  12. MS CONTIN [Concomitant]
     Active Substance: MORPHINE SULFATE
     Dosage: 30 MG, 3X/DAY (1 TABLET(S) PO EVERY EIGHT HOURS)
     Route: 048
  13. SYNTHROID [Concomitant]
     Active Substance: LEVOTHYROXINE SODIUM
     Dosage: 137 UG, UNK
     Route: 048
  14. ALPRAZOLAM. [Concomitant]
     Active Substance: ALPRAZOLAM
     Dosage: 0.5 MG, UNK

REACTIONS (15)
  - Pollakiuria [Unknown]
  - Candida infection [Unknown]
  - Chills [Unknown]
  - Rash [Not Recovered/Not Resolved]
  - Dry skin [Unknown]
  - Skin warm [Unknown]
  - Dysuria [Unknown]
  - Suprapubic pain [Unknown]
  - Urinary tract infection [Recovered/Resolved]
  - Disease recurrence [Recovered/Resolved]
  - Haematuria [Unknown]
  - Therapeutic response unexpected [Unknown]
  - Erythema nodosum [Unknown]
  - Pre-existing condition improved [Unknown]
  - Bladder pain [Unknown]
